FAERS Safety Report 9541408 (Version 1)
Quarter: 2013Q3

REPORT INFORMATION
  Report Type: Spontaneous
  Country: US (occurrence: None)
  Receive Date: 20130919
  Receipt Date: 20130919
  Transmission Date: 20140515
  Serious: Yes (Disabling)
  Sender: FDA-Public Use
  Company Number: None

PATIENT
  Sex: 0

DRUGS (1)
  1. ZOMETA [Suspect]
     Indication: CALCIUM DEFICIENCY
     Dosage: 15 MIN INFUSION ONCE
     Dates: start: 20130828

REACTIONS (7)
  - Influenza like illness [None]
  - Arthritis [None]
  - Pain in extremity [None]
  - Paraesthesia [None]
  - Pain in extremity [None]
  - Muscle contractions involuntary [None]
  - Arthralgia [None]
